FAERS Safety Report 9777386 (Version 1)
Quarter: 2013Q4

REPORT INFORMATION
  Report Type: Report from Study
  Country: MX (occurrence: MX)
  Receive Date: 20131221
  Receipt Date: 20131221
  Transmission Date: 20140711
  Serious: Yes (Life-Threatening)
  Sender: FDA-Public Use
  Company Number: PHHY2013MX150031

PATIENT
  Age: 59 Year
  Sex: Female

DRUGS (3)
  1. DIOVAN [Suspect]
     Indication: BLOOD PRESSURE ABNORMAL
     Dosage: 160 MG, UNK
     Route: 048
  2. DIOVAN [Suspect]
     Indication: BLOOD GLUCOSE ABNORMAL
  3. DIOVAN [Suspect]
     Indication: OFF LABEL USE

REACTIONS (8)
  - Feeling abnormal [Recovered/Resolved]
  - Fall [Recovered/Resolved]
  - Malaise [Recovered/Resolved]
  - Blood glucose increased [Recovered/Resolved]
  - Headache [Not Recovered/Not Resolved]
  - Dizziness [Recovered/Resolved]
  - Vertigo [Recovered/Resolved]
  - Blood pressure increased [Recovered/Resolved]
